FAERS Safety Report 8348733-9 (Version None)
Quarter: 2012Q2

REPORT INFORMATION
  Report Type: 
  Country: None (occurrence: None)
  Receive Date: 20120508
  Receipt Date: 20120423
  Transmission Date: 20120825
  Serious: Yes (Other)
  Sender: FDA-Public Use
  Company Number: MC201200279

PATIENT
  Age: 49 Year
  Sex: Female
  Weight: 85 kg

DRUGS (8)
  1. PLAVIX [Concomitant]
  2. ISOVUE-370 [Concomitant]
  3. ASPIRIN [Concomitant]
  4. ISOVUE-370 [Concomitant]
  5. ANGIOMAX [Suspect]
     Indication: PERCUTANEOUS CORONARY INTERVENTION
     Dosage: 13 ML, BOLUS, INTRAVENOUS 30 ML, HR, INTRAVENOUS 13 ML, BOLUS, INTRAVENOUS 30 ML, HR, INTRAVENOUS
     Route: 040
     Dates: start: 20120309, end: 20120309
  6. ANGIOMAX [Suspect]
     Indication: PERCUTANEOUS CORONARY INTERVENTION
     Dosage: 13 ML, BOLUS, INTRAVENOUS 30 ML, HR, INTRAVENOUS 13 ML, BOLUS, INTRAVENOUS 30 ML, HR, INTRAVENOUS
     Route: 040
     Dates: start: 20120309, end: 20120309
  7. ANGIOMAX [Suspect]
     Indication: PERCUTANEOUS CORONARY INTERVENTION
     Dosage: 13 ML, BOLUS, INTRAVENOUS 30 ML, HR, INTRAVENOUS 13 ML, BOLUS, INTRAVENOUS 30 ML, HR, INTRAVENOUS
     Route: 040
     Dates: start: 20120309, end: 20120309
  8. ANGIOMAX [Suspect]
     Indication: PERCUTANEOUS CORONARY INTERVENTION
     Dosage: 13 ML, BOLUS, INTRAVENOUS 30 ML, HR, INTRAVENOUS 13 ML, BOLUS, INTRAVENOUS 30 ML, HR, INTRAVENOUS
     Route: 040
     Dates: start: 20120309, end: 20120309

REACTIONS (4)
  - ELECTROCARDIOGRAM ST SEGMENT ELEVATION [None]
  - THROMBOSIS IN DEVICE [None]
  - CHEST PAIN [None]
  - CORONARY ARTERY STENOSIS [None]
